FAERS Safety Report 12130285 (Version 1)
Quarter: 2016Q1

REPORT INFORMATION
  Report Type: Spontaneous
  Country: US (occurrence: None)
  Receive Date: 20160229
  Receipt Date: 20160229
  Transmission Date: 20160526
  Serious: Yes (Disabling)
  Sender: FDA-Public Use
  Company Number: None

PATIENT
  Age: 62 Year
  Sex: Female
  Weight: 90.72 kg

DRUGS (3)
  1. BUPROPION XL 150 MG TABLET ACTAVIS [Suspect]
     Active Substance: BUPROPION
     Indication: DEPRESSION
     Dosage: 2 PILLS ONCE DAILY TAKEN BY MOUTH
     Route: 048
  2. ARMOUR THYROID [Concomitant]
     Active Substance: THYROID, PORCINE
  3. VITAMIN [Concomitant]
     Active Substance: VITAMINS

REACTIONS (1)
  - Dyspepsia [None]

NARRATIVE: CASE EVENT DATE: 20160226
